FAERS Safety Report 9859893 (Version 1)
Quarter: 2014Q1

REPORT INFORMATION
  Report Type: Spontaneous
  Country: JP (occurrence: JP)
  Receive Date: 20140131
  Receipt Date: 20140131
  Transmission Date: 20141002
  Serious: Yes (Other)
  Sender: FDA-Public Use
  Company Number: JP-ASTRAZENECA-2014SE06474

PATIENT
  Sex: 0

DRUGS (1)
  1. SYMBICORT TURBUHALER [Suspect]
     Dosage: DOSE UNKNOWN
     Route: 055

REACTIONS (1)
  - Suicidal ideation [Unknown]
